FAERS Safety Report 21781117 (Version 3)
Quarter: 2023Q1

REPORT INFORMATION
  Report Type: Spontaneous
  Country: AU (occurrence: AU)
  Receive Date: 20221227
  Receipt Date: 20230310
  Transmission Date: 20230418
  Serious: Yes (Death, Other)
  Sender: FDA-Public Use
  Company Number: AU-CELLTRION INC.-2022AU021648

PATIENT

DRUGS (1)
  1. INFLIXIMAB [Suspect]
     Active Substance: INFLIXIMAB
     Dosage: 5 MG/KG ,8 WKLY

REACTIONS (2)
  - Death [Fatal]
  - Off label use [Unknown]
